FAERS Safety Report 5779415-5 (Version None)
Quarter: 2008Q2

REPORT INFORMATION
  Report Type: 
  Country: None (occurrence: None)
  Receive Date: 20080619
  Receipt Date: 20080218
  Transmission Date: 20081010
  Serious: No
  Sender: FDA-Public Use
  Company Number: US-ASTRAZENECA-2008UW03345

PATIENT
  Age: 67 Year
  Sex: Male
  Weight: 73 kg

DRUGS (3)
  1. ATACAND [Suspect]
     Indication: HYPERTENSION
     Route: 048
     Dates: start: 20080128
  2. TOPROL-XL [Concomitant]
     Route: 048
  3. CYMBALTA [Concomitant]

REACTIONS (3)
  - DRUG INEFFECTIVE [None]
  - FLATULENCE [None]
  - LIBIDO DECREASED [None]
